FAERS Safety Report 6000257-X (Version None)
Quarter: 2008Q4

REPORT INFORMATION
  Report Type: 
  Country: None (occurrence: None)
  Receive Date: 20081215
  Receipt Date: 20081209
  Transmission Date: 20090506
  Serious: Yes (Life-Threatening, Other)
  Sender: FDA-Public Use
  Company Number: US-MERCK-0812USA00651

PATIENT
  Sex: Female
  Weight: 100 kg

DRUGS (1)
  1. SINGULAIR [Suspect]
     Indication: ASTHMA
     Route: 048

REACTIONS (3)
  - ALLERGIC GRANULOMATOUS ANGIITIS [None]
  - PRURITUS GENERALISED [None]
  - SUICIDAL IDEATION [None]
